FAERS Safety Report 10288119 (Version 2)
Quarter: 2014Q3

REPORT INFORMATION
  Report Type: Spontaneous
  Country: US (occurrence: None)
  Receive Date: 20140707
  Receipt Date: 20140806
  Transmission Date: 20150326
  Serious: Yes (Hospitalization)
  Sender: FDA-Public Use
  Company Number: UNT-2014-003118

PATIENT
  Age: 48 Year
  Sex: Female
  Weight: 46.3 kg

DRUGS (3)
  1. REVATIO (SILDENAFIL CITRATE) [Concomitant]
  2. LETAIRIS [Concomitant]
     Active Substance: AMBRISENTAN
  3. REMODULIN [Suspect]
     Active Substance: TREPROSTINIL
     Indication: COR PULMONALE CHRONIC
     Route: 041
     Dates: start: 20140214

REACTIONS (6)
  - Fatigue [None]
  - Computerised tomogram abnormal [None]
  - Asthenia [None]
  - Dizziness [None]
  - Insomnia [None]
  - Nausea [None]

NARRATIVE: CASE EVENT DATE: 201406
